FAERS Safety Report 8944209 (Version 1)
Quarter: 2012Q4

REPORT INFORMATION
  Report Type: 
  Country: US (occurrence: US)
  Receive Date: 20121204
  Receipt Date: 20121204
  Transmission Date: 20130627
  Serious: No
  Sender: FDA-Public Use
  Company Number: US-AMGEN-USASP2012066637

PATIENT
  Age: 19 Year
  Sex: Female
  Weight: 66.22 kg

DRUGS (3)
  1. ENBREL [Suspect]
     Indication: PSORIASIS
     Dosage: 50 mg, 2 times/wk
     Route: 058
     Dates: start: 20120910, end: 20121016
  2. INSULIN [Concomitant]
     Indication: TYPE 1 DIABETES MELLITUS
     Dosage: UNK
  3. DORYX                              /00055701/ [Concomitant]
     Indication: ACNE
     Dosage: 50 mg, qd
     Route: 048

REACTIONS (3)
  - Injection site pruritus [Unknown]
  - Injection site rash [Unknown]
  - Rash maculo-papular [Not Recovered/Not Resolved]
